FAERS Safety Report 5862830-9 (Version None)
Quarter: 2008Q3

REPORT INFORMATION
  Report Type: 
  Country: None (occurrence: None)
  Receive Date: 20080828
  Receipt Date: 20080821
  Transmission Date: 20090109
  Serious: Yes (Other)
  Sender: FDA-Public Use
  Company Number: US-AMGEN-QUU303301

PATIENT
  Sex: Male
  Weight: 70.4 kg

DRUGS (4)
  1. ENBREL [Suspect]
     Indication: DRUG USE FOR UNKNOWN INDICATION
  2. REMICADE [Suspect]
     Indication: PSORIATIC ARTHROPATHY
     Route: 042
     Dates: start: 20080401
  3. ZYRTEC [Concomitant]
     Route: 048
     Dates: start: 20060101
  4. CIPRO [Concomitant]
     Route: 048
     Dates: start: 19960101

REACTIONS (1)
  - ANKYLOSING SPONDYLITIS [None]
